FAERS Safety Report 8010431-9 (Version None)
Quarter: 2011Q4

REPORT INFORMATION
  Report Type: 
  Country: None (occurrence: None)
  Receive Date: 20111222
  Receipt Date: 20111216
  Transmission Date: 20120403
  Serious: Yes (Death)
  Sender: FDA-Public Use
  Company Number: AUR-APL-2011-05381

PATIENT
  Age: 19 Year
  Sex: Female
  Weight: 66 kg

DRUGS (11)
  1. TEMAZEPAM [Suspect]
     Indication: PRODUCT USED FOR UNKNOWN INDICATION
     Dosage: 30 MG (30 MG,1 IN 1 D)
  2. CLONAZEPAM [Concomitant]
  3. CONCERTA [Concomitant]
  4. OXYCODONE HCL [Suspect]
     Indication: PRODUCT USED FOR UNKNOWN INDICATION
  5. ZOLPIDEM [Concomitant]
  6. HYDROCODONE BITARTRATE [Concomitant]
  7. DEXTROAMPETAMINE SULFATE TAB [Concomitant]
  8. VENLAFAXINE [Suspect]
     Indication: PRODUCT USED FOR UNKNOWN INDICATION
  9. DIAZEPAM [Suspect]
     Indication: PRODUCT USED FOR UNKNOWN INDICATION
  10. CITALOPRAM HYDROBROMIDE [Concomitant]
  11. CYCLOBENZOPINE (CYCLOBENZAPRINE) [Concomitant]

REACTIONS (5)
  - MULTIPLE DRUG OVERDOSE [None]
  - ACCIDENTAL DEATH [None]
  - FOAMING AT MOUTH [None]
  - CARDIAC ARREST [None]
  - SCAR [None]
